FAERS Safety Report 8606161-2 (Version None)
Quarter: 2012Q3

REPORT INFORMATION
  Report Type: 
  Country: None (occurrence: None)
  Receive Date: 20120809
  Receipt Date: 20120809
  Transmission Date: 20120928
  Serious: No
  Sender: FDA-Public Use
  Company Number: None

PATIENT

DRUGS (1)
  1. SODIUM AMYTAL INJECTION 0.5GM MARATHON PHARMACEUTICALS [Suspect]

REACTIONS (1)
  - INADEQUATE ANALGESIA [None]
